FAERS Safety Report 10484600 (Version 1)
Quarter: 2014Q3

REPORT INFORMATION
  Report Type: Report from Study
  Country: US (occurrence: US)
  Receive Date: 20140930
  Receipt Date: 20140930
  Transmission Date: 20150326
  Serious: No
  Sender: FDA-Public Use
  Company Number: US-ALEXION-A201102423

PATIENT
  Age: 67 Year
  Sex: Female

DRUGS (3)
  1. PREDNISONE. [Concomitant]
     Active Substance: PREDNISONE
     Indication: PRODUCT USED FOR UNKNOWN INDICATION
     Dosage: UNK
  2. SOLIRIS [Suspect]
     Active Substance: ECULIZUMAB
     Indication: PAROXYSMAL NOCTURNAL HAEMOGLOBINURIA
     Dosage: UNK
     Route: 042
     Dates: start: 20121127, end: 20121127
  3. SOLIRIS [Suspect]
     Active Substance: ECULIZUMAB
     Dosage: UNK
     Route: 042
     Dates: start: 20121211

REACTIONS (12)
  - Neutropenia [Unknown]
  - Weight increased [Unknown]
  - Sinusitis [Unknown]
  - Oral discomfort [Unknown]
  - Feeling hot [Unknown]
  - Platelet count decreased [Unknown]
  - Blood glucose increased [Unknown]
  - Abdominal discomfort [Unknown]
  - Nasal discharge discolouration [Unknown]
  - Facial pain [Unknown]
  - Thrombocytopenia [Unknown]
  - Hyperhidrosis [Unknown]

NARRATIVE: CASE EVENT DATE: 20110611
